FAERS Safety Report 12144159 (Version 1)
Quarter: 2016Q1

REPORT INFORMATION
  Report Type: Spontaneous
  Country: JP (occurrence: JP)
  Receive Date: 20160304
  Receipt Date: 20160304
  Transmission Date: 20160526
  Serious: Yes (Other)
  Sender: FDA-Public Use
  Company Number: JP-ROCHE-1717350

PATIENT
  Age: 6 Year
  Sex: Female
  Weight: 20 kg

DRUGS (3)
  1. MUCOSAL (JAPAN) [Concomitant]
     Indication: INFLUENZA
     Route: 048
     Dates: start: 20160208
  2. TAMIFLU [Suspect]
     Active Substance: OSELTAMIVIR PHOSPHATE
     Indication: INFLUENZA
     Dosage: DOSAGE IS UNCERTAIN.
     Route: 048
     Dates: start: 20160208, end: 20160213
  3. ASVERIN (JAPAN) [Concomitant]
     Indication: INFLUENZA
     Route: 048
     Dates: start: 20160208

REACTIONS (2)
  - Nasal congestion [Unknown]
  - Abnormal behaviour [Recovered/Resolved]

NARRATIVE: CASE EVENT DATE: 20160208
